FAERS Safety Report 21211285 (Version 1)
Quarter: 2022Q3

REPORT INFORMATION
  Report Type: Spontaneous
  Country: US (occurrence: None)
  Receive Date: 20220812
  Receipt Date: 20220812
  Transmission Date: 20221026
  Serious: Yes (unspecified)
  Sender: FDA-Public Use
  Company Number: None

PATIENT
  Age: 51 Year
  Sex: Female
  Weight: 100 kg

DRUGS (1)
  1. BEBTELOVIMAB [Suspect]
     Active Substance: BEBTELOVIMAB
     Indication: COVID-19
     Dates: start: 20220811, end: 20220811

REACTIONS (9)
  - Dyspnoea [None]
  - Skin discolouration [None]
  - Muscle spasms [None]
  - Pain [None]
  - Chest pain [None]
  - Pain in extremity [None]
  - Arthralgia [None]
  - Nausea [None]
  - Nervousness [None]

NARRATIVE: CASE EVENT DATE: 20220811
